FAERS Safety Report 4447373-1 (Version None)
Quarter: 2004Q3

REPORT INFORMATION
  Report Type: 
  Country: None (occurrence: None)
  Receive Date: 20040802
  Receipt Date: 20040604
  Transmission Date: 20050211
  Serious: No
  Sender: FDA-Public Use
  Company Number: 2004-117503-NL

PATIENT
  Age: 31 Year
  Sex: Female
  Weight: 61.2 kg

DRUGS (3)
  1. NUVARING [Suspect]
     Indication: CONTRACEPTION
     Dosage: DF DAILY VAGINAL
     Route: 067
     Dates: start: 20040602
  2. LEVOTHYROXIN [Concomitant]
  3. MULTI-VITAMINS [Concomitant]

REACTIONS (2)
  - ABDOMINAL PAIN [None]
  - LOCAL SWELLING [None]
